FAERS Safety Report 7518455-2 (Version None)
Quarter: 2011Q2

REPORT INFORMATION
  Report Type: 
  Country: None (occurrence: None)
  Receive Date: 20110602
  Receipt Date: 20110524
  Transmission Date: 20111010
  Serious: Yes (Hospitalization, Other)
  Sender: FDA-Public Use
  Company Number: US-JNJFOC-20110511986

PATIENT
  Sex: Female
  Weight: 113.4 kg

DRUGS (16)
  1. CELEBREX [Concomitant]
     Route: 048
  2. HYDROCODONE BITARTRATE [Concomitant]
     Indication: PAIN
     Route: 048
  3. FISH OIL [Concomitant]
     Indication: GENERAL PHYSICAL CONDITION
     Route: 048
  4. KLOR-CON [Concomitant]
     Indication: ELECTROLYTE SUBSTITUTION THERAPY
     Route: 048
  5. FENTANYL-100 [Suspect]
     Indication: SPINAL COLUMN STENOSIS
     Route: 062
     Dates: start: 20050101
  6. MICARDIS [Concomitant]
     Indication: HYPERTENSION
     Route: 048
  7. CALCIUM CARBONATE [Concomitant]
     Route: 048
     Dates: start: 20100101
  8. FENTANYL-100 [Suspect]
     Dosage: NDC 0781-7241-55
     Route: 062
     Dates: end: 20110501
  9. FUROSEMIDE [Concomitant]
     Indication: FLUID RETENTION
     Route: 048
  10. FENTANYL CITRATE [Suspect]
     Indication: SPINAL COLUMN STENOSIS
     Dosage: NDC 03789121-98
     Route: 062
     Dates: start: 20110501
  11. AN UNKNOWN MEDICATION [Concomitant]
     Indication: HYPERTENSION
     Route: 048
     Dates: start: 20050101
  12. CYMBALTA [Concomitant]
     Indication: ANXIETY
     Route: 048
  13. ASPIRIN [Concomitant]
     Indication: PROPHYLAXIS
     Route: 048
  14. LYRICA [Concomitant]
     Indication: NERVE INJURY
     Route: 048
  15. LORAZEPAM [Concomitant]
     Indication: ANXIETY
     Route: 048
  16. VITAMIN TAB [Concomitant]
     Route: 048

REACTIONS (5)
  - NIGHT SWEATS [None]
  - HYPERTENSION [None]
  - ADVERSE DRUG REACTION [None]
  - MENINGIOMA [None]
  - BLOOD CHOLESTEROL INCREASED [None]
